FAERS Safety Report 9399908 (Version 2)
Quarter: 2014Q1

REPORT INFORMATION
  Report Type: Spontaneous
  Country: US (occurrence: US)
  Receive Date: 20130715
  Receipt Date: 20140228
  Transmission Date: 20141002
  Serious: Yes (Hospitalization)
  Sender: FDA-Public Use
  Company Number: US-ROCHE-1246106

PATIENT
  Age: 36 Year
  Sex: Male

DRUGS (16)
  1. VALIUM [Suspect]
     Indication: PRODUCT USED FOR UNKNOWN INDICATION
     Route: 065
     Dates: start: 2010, end: 20121012
  2. BMS-650032 [Suspect]
     Indication: HEPATITIS C
     Route: 048
     Dates: start: 20121130, end: 20130221
  3. COCAINE [Suspect]
     Indication: PRODUCT USED FOR UNKNOWN INDICATION
     Route: 065
  4. BMS-790052 (HCV NS5A INHIBITOR) [Suspect]
     Indication: HEPATITIS C
     Route: 048
     Dates: start: 20121130, end: 20130221
  5. BMS-791325 (NS5B INHIBITOR) [Suspect]
     Indication: HEPATITIS C
     Route: 048
     Dates: start: 20121130, end: 20130221
  6. PHENERGAN [Concomitant]
     Route: 065
     Dates: start: 20121013, end: 20130417
  7. KETOCONAZOLE [Concomitant]
     Route: 065
     Dates: start: 1994, end: 20121013
  8. CARBOCAL [Concomitant]
     Route: 065
     Dates: start: 201203, end: 20130221
  9. SUBUTEX [Concomitant]
     Route: 065
     Dates: start: 201209, end: 20130512
  10. AMFETAMINE [Concomitant]
     Route: 065
     Dates: start: 2000
  11. NEURONTIN (UNITED STATES) [Concomitant]
     Route: 065
     Dates: start: 2000, end: 20130512
  12. ZYPREXA [Concomitant]
     Route: 065
     Dates: start: 201202, end: 20130512
  13. SEROQUEL [Concomitant]
     Route: 065
     Dates: start: 2010, end: 20130512
  14. BENZTROPINE [Concomitant]
     Route: 065
     Dates: start: 201202, end: 20130512
  15. NICOTINE [Concomitant]
     Route: 065
     Dates: start: 2010
  16. ADVIL [Concomitant]
     Route: 065
     Dates: start: 2005, end: 20130512

REACTIONS (2)
  - Ischaemic stroke [Recovered/Resolved with Sequelae]
  - Deep vein thrombosis [Recovered/Resolved]
